FAERS Safety Report 16601674 (Version 1)
Quarter: 2019Q3

REPORT INFORMATION
  Report Type: Spontaneous
  Country: US (occurrence: US)
  Receive Date: 20190719
  Receipt Date: 20190719
  Transmission Date: 20191004
  Serious: No
  Sender: FDA-Public Use
  Company Number: US-TEVA-2019-US-1079691

PATIENT
  Age: 64 Year
  Sex: Female

DRUGS (1)
  1. NUVIGIL [Suspect]
     Active Substance: ARMODAFINIL
     Indication: NARCOLEPSY
     Dosage: COULD HAVE BEEN 200MG, OR 100MG
     Route: 065

REACTIONS (3)
  - Feeling abnormal [Unknown]
  - Drug intolerance [Unknown]
  - Adverse reaction [Unknown]
